FAERS Safety Report 8564283-9 (Version None)
Quarter: 2012Q3

REPORT INFORMATION
  Report Type: 
  Country: None (occurrence: None)
  Receive Date: 20120803
  Receipt Date: 20120725
  Transmission Date: 20120928
  Serious: Yes (Other)
  Sender: FDA-Public Use
  Company Number: US-JNJFOC-20120715289

PATIENT
  Sex: Female
  Weight: 68.95 kg

DRUGS (2)
  1. REMICADE [Suspect]
     Indication: ANKYLOSING SPONDYLITIS
     Route: 042
     Dates: start: 20080101
  2. REMICADE [Suspect]
     Indication: CROHN'S DISEASE
     Route: 042
     Dates: start: 20080101

REACTIONS (6)
  - PARAESTHESIA [None]
  - WEIGHT INCREASED [None]
  - PERIPHERAL ARTERIAL OCCLUSIVE DISEASE [None]
  - URTICARIA [None]
  - HYPOAESTHESIA [None]
  - GLAUCOMA [None]
